FAERS Safety Report 14010938 (Version 2)
Quarter: 2017Q3

REPORT INFORMATION
  Report Type: Spontaneous
  Country: US (occurrence: US)
  Receive Date: 20170926
  Receipt Date: 20170928
  Transmission Date: 20171128
  Serious: No
  Sender: FDA-Public Use
  Company Number: US-PFIZER INC-2017412264

PATIENT
  Age: 62 Year
  Sex: Male
  Weight: 79 kg

DRUGS (5)
  1. LISINOPRIL. [Concomitant]
     Active Substance: LISINOPRIL
     Indication: HYPERTENSION
     Dosage: 10 MG, 2X/DAY, HALF TABLET
  2. DOXAZOSIN [Concomitant]
     Active Substance: DOXAZOSIN\DOXAZOSIN MESYLATE
     Indication: HYPERTENSION
     Dosage: 1.5 MG, DAILY, AT BEDTIME
  3. LYRICA [Suspect]
     Active Substance: PREGABALIN
     Dosage: 150 UNK, UNK
     Route: 048
     Dates: start: 201709, end: 20170916
  4. LYRICA [Suspect]
     Active Substance: PREGABALIN
     Indication: NEUROPATHY PERIPHERAL
     Dosage: 150 MG, 2X/DAY
     Route: 048
     Dates: start: 2016, end: 201709
  5. HYDRALAZINE [Concomitant]
     Active Substance: HYDRALAZINE HYDROCHLORIDE
     Indication: HYPERTENSION
     Dosage: 75 MG, 3X/DAY
     Route: 048

REACTIONS (9)
  - Insomnia [Not Recovered/Not Resolved]
  - Intentional product use issue [Unknown]
  - Diarrhoea [Not Recovered/Not Resolved]
  - Pruritus [Not Recovered/Not Resolved]
  - Scar [Unknown]
  - Withdrawal syndrome [Not Recovered/Not Resolved]
  - Malaise [Unknown]
  - Skin burning sensation [Not Recovered/Not Resolved]
  - Nausea [Not Recovered/Not Resolved]

NARRATIVE: CASE EVENT DATE: 20170912
